FAERS Safety Report 9483511 (Version 1)
Quarter: 2013Q3

REPORT INFORMATION
  Report Type: Spontaneous
  Country: CA (occurrence: CA)
  Receive Date: 20130828
  Receipt Date: 20130828
  Transmission Date: 20140515
  Serious: Yes (Hospitalization)
  Sender: FDA-Public Use
  Company Number: CA-AMGEN-KDL275431

PATIENT
  Age: 66 Year
  Sex: Female

DRUGS (2)
  1. ENBREL [Suspect]
     Indication: RHEUMATOID ARTHRITIS
     Dosage: UNK UNK, 2 TIMES/WK
     Route: 058
     Dates: start: 20021222, end: 20070801
  2. ACETAMINOPHEN [Concomitant]
     Dosage: UNK UNK, PRN
     Route: 048

REACTIONS (4)
  - Renal failure chronic [Unknown]
  - Ear infection [Unknown]
  - Mass [Unknown]
  - Abdominal infection [Unknown]
